FAERS Safety Report 5083390-9 (Version None)
Quarter: 2006Q3

REPORT INFORMATION
  Report Type: 
  Country: None (occurrence: None)
  Receive Date: 20060720
  Receipt Date: 20060314
  Transmission Date: 20061208
  Serious: Yes (Hospitalization)
  Sender: FDA-Public Use
  Company Number: 2006070811

PATIENT
  Age: 40 Year
  Sex: Female

DRUGS (3)
  1. CELEBREX [Suspect]
     Indication: BACK PAIN
     Dosage: 400 MG (200 MG, 2 IN 1 D)
     Dates: start: 20030626, end: 20040428
  2. CELEBREX [Suspect]
     Indication: PAIN IN EXTREMITY
     Dosage: 400 MG (200 MG, 2 IN 1 D)
     Dates: start: 20030626, end: 20040428
  3. CELEBREX [Suspect]
     Indication: ROAD TRAFFIC ACCIDENT
     Dosage: 400 MG (200 MG, 2 IN 1 D)
     Dates: start: 20030626, end: 20040428

REACTIONS (1)
  - CEREBROVASCULAR ACCIDENT [None]
